FAERS Safety Report 11924392 (Version 5)
Quarter: 2016Q1

REPORT INFORMATION
  Report Type: Spontaneous
  Country: JP (occurrence: JP)
  Receive Date: 20160118
  Receipt Date: 20160205
  Transmission Date: 20160526
  Serious: Yes (Death, Hospitalization)
  Sender: FDA-Public Use
  Company Number: JP-009507513-1601JPN004289

PATIENT
  Age: 88 Year
  Sex: Male
  Weight: 52.8 kg

DRUGS (15)
  1. PREDONINE [Concomitant]
     Active Substance: PREDNISOLONE\PREDNISOLONE ACETATE\PREDNISOLONE SODIUM SUCCINATE
     Indication: MALIGNANT MELANOMA
     Dosage: 40 MG, BID
     Route: 048
     Dates: start: 20151203, end: 20151217
  2. REMINARON [Concomitant]
     Active Substance: GABEXATE MESYLATE
     Indication: DISSEMINATED INTRAVASCULAR COAGULATION
     Dosage: 600 MG, QD
     Route: 051
     Dates: start: 20151211, end: 20151217
  3. ITRACONAZOLE. [Concomitant]
     Active Substance: ITRACONAZOLE
     Indication: OESOPHAGEAL CANDIDIASIS
  4. CANCIDAS [Suspect]
     Active Substance: CASPOFUNGIN ACETATE
     Indication: BRONCHOPULMONARY ASPERGILLOSIS
     Dosage: 70 MG, QD
     Route: 041
     Dates: start: 20151203, end: 20151203
  5. FINIBAX [Concomitant]
     Active Substance: DORIPENEM MONOHYDRATE
     Indication: PNEUMONIA ASPIRATION
     Dosage: 0.5 G, TID
     Route: 051
     Dates: start: 20151214, end: 20151217
  6. CANCIDAS [Suspect]
     Active Substance: CASPOFUNGIN ACETATE
     Indication: OESOPHAGEAL CANDIDIASIS
  7. ALENDRONATE SODIUM. [Concomitant]
     Active Substance: ALENDRONATE SODIUM
     Indication: OSTEOPOROSIS
     Dosage: 35 MG, QD; FORMULATION: JELLY
     Route: 048
     Dates: start: 20151203, end: 20151217
  8. CANCIDAS [Suspect]
     Active Substance: CASPOFUNGIN ACETATE
     Indication: BRONCHOPULMONARY ASPERGILLOSIS
     Dosage: 50 MG, QD
     Route: 041
     Dates: start: 20151204, end: 20151216
  9. BENAMBAX [Concomitant]
     Active Substance: PENTAMIDINE
     Indication: PNEUMOCYSTIS JIROVECII PNEUMONIA
     Dosage: 240 G, QD
     Route: 051
     Dates: start: 20151208, end: 20151217
  10. ELNEOPA NO. 1 [Concomitant]
     Indication: NUTRITIONAL CONDITION ABNORMAL
     Dosage: 1 L, QD
     Route: 051
     Dates: start: 20151212, end: 20151217
  11. ITRACONAZOLE. [Concomitant]
     Active Substance: ITRACONAZOLE
     Indication: BRONCHOPULMONARY ASPERGILLOSIS
     Dosage: DIVIDED DOSE, FREQUENCY UNKNOWN; TOTAL DAILY DOSE 200 MG, FORMULATION: UNKNOWN PERORAL FORMULATION
     Route: 048
     Dates: start: 20151130, end: 20151203
  12. CANCIDAS [Suspect]
     Active Substance: CASPOFUNGIN ACETATE
     Indication: OESOPHAGEAL CANDIDIASIS
  13. ZITHROMAC [Concomitant]
     Active Substance: AZITHROMYCIN DIHYDRATE
     Indication: PNEUMONIA BACTERIAL
     Dosage: 2 G, QD
     Route: 048
     Dates: start: 20151203, end: 20151203
  14. BIOFERMIN R [Concomitant]
     Active Substance: BACILLUS SUBTILIS\LACTOBACILLUS ACIDOPHILUS\STREPTOCOCCUS FAECAIS
     Indication: COLITIS ULCERATIVE
     Dosage: 1 G, TID
     Route: 048
     Dates: start: 20151203, end: 20151217
  15. SULFAMETHOXAZOLE AND TRIMETHOPRIM [Concomitant]
     Active Substance: SULFAMETHOXAZOLE\TRIMETHOPRIM
     Indication: PNEUMOCYSTIS JIROVECII PNEUMONIA
     Dosage: 480 MG, BID
     Route: 048
     Dates: start: 20151203, end: 20151208

REACTIONS (5)
  - Pneumonia aspiration [Fatal]
  - C-reactive protein increased [Fatal]
  - White blood cell count increased [Fatal]
  - Respiratory failure [Fatal]
  - Blood lactate dehydrogenase increased [Fatal]

NARRATIVE: CASE EVENT DATE: 201512
